FAERS Safety Report 8171653-X (Version None)
Quarter: 2012Q1

REPORT INFORMATION
  Report Type: 
  Country: None (occurrence: None)
  Receive Date: 20120113
  Receipt Date: 20111125
  Transmission Date: 20120608
  Serious: No
  Sender: FDA-Public Use
  Company Number: PHEH2011US07100

PATIENT
  Age: 41 Year
  Sex: Female
  Weight: 175 kg

DRUGS (1)
  1. ILARIS [Suspect]
     Indication: FAMILIAL COLD AUTOINFLAMMATORY SYNDROME
     Dosage: 150 MG, UNK, SUBCUTANEOUS
     Route: 058
     Dates: start: 20110201

REACTIONS (2)
  - ARTHRALGIA [None]
  - DRUG INEFFECTIVE [None]
